FAERS Safety Report 8862847 (Version 2)
Quarter: 2013Q1

REPORT INFORMATION
  Report Type: Spontaneous
  Country: US (occurrence: US)
  Receive Date: 20121026
  Receipt Date: 20130109
  Transmission Date: 20140127
  Serious: No
  Sender: FDA-Public Use
  Company Number: US-GLAXOSMITHKLINE-A0998840A

PATIENT
  Age: 71 Year
  Sex: Female
  Weight: 57.4 kg

DRUGS (13)
  1. PROMACTA [Suspect]
     Indication: THROMBOCYTOPENIA
     Dosage: 50MG PER DAY
     Route: 048
     Dates: start: 20120725, end: 20120904
  2. CIPRO [Concomitant]
  3. VORICONAZOLE [Concomitant]
  4. VALACYCLOVIR [Concomitant]
  5. VALTREX [Concomitant]
  6. HYDROXYZINE [Concomitant]
  7. VENTOLIN [Concomitant]
  8. FUROSEMIDE [Concomitant]
  9. FOLIC ACID [Concomitant]
  10. COUMADIN [Concomitant]
  11. PREDNISONE [Concomitant]
  12. METHOTREXATE [Concomitant]
  13. DECITABINE [Concomitant]
     Route: 042

REACTIONS (1)
  - Drug ineffective [Unknown]
